FAERS Safety Report 24265145 (Version 1)
Quarter: 2024Q3

REPORT INFORMATION
  Report Type: Spontaneous
  Country: US (occurrence: US)
  Receive Date: 20240829
  Receipt Date: 20240829
  Transmission Date: 20241017
  Serious: No
  Sender: TEVA
  Company Number: US-TEVA-VS-3207585

PATIENT
  Age: 65 Year
  Sex: Female

DRUGS (1)
  1. UZEDY [Suspect]
     Active Substance: RISPERIDONE
     Indication: Product used for unknown indication
     Route: 030

REACTIONS (3)
  - Injection site pain [Unknown]
  - Urticaria [Unknown]
  - Incorrect route of product administration [Unknown]
